FAERS Safety Report 6138340-0 (Version None)
Quarter: 2009Q1

REPORT INFORMATION
  Report Type: 
  Country: None (occurrence: None)
  Receive Date: 20090327
  Receipt Date: 20090308
  Transmission Date: 20090719
  Serious: Yes (Other)
  Sender: FDA-Public Use
  Company Number: 2007S1006874

PATIENT
  Age: 70 Year
  Sex: Male
  Weight: 93.441 kg

DRUGS (4)
  1. PHOSPHOSODA FLAVOR NOT SPECIFIED [Suspect]
     Indication: COLONOSCOPY
     Dosage: 90 ML; TOTAL; PO
     Route: 048
     Dates: start: 20030923, end: 20030923
  2. DIOVAN HCT [Concomitant]
  3. POTASSIUM CHLORIDE [Concomitant]
  4. DULCOLAX /00064401/ [Concomitant]

REACTIONS (3)
  - HYPERPHOSPHATAEMIA [None]
  - RENAL FAILURE CHRONIC [None]
  - TUBULOINTERSTITIAL NEPHRITIS [None]
